FAERS Safety Report 8472210-8 (Version None)
Quarter: 2012Q2

REPORT INFORMATION
  Report Type: 
  Country: None (occurrence: None)
  Receive Date: 20120627
  Receipt Date: 20120620
  Transmission Date: 20120825
  Serious: Yes (Hospitalization)
  Sender: FDA-Public Use
  Company Number: ES-ELI_LILLY_AND_COMPANY-ES201206007227

PATIENT
  Sex: Female
  Weight: 89 kg

DRUGS (11)
  1. FORTEO [Suspect]
     Indication: OSTEOPOROSIS
     Dosage: 20 UG, QD
     Route: 058
     Dates: start: 20100920
  2. LORAZEPAM [Concomitant]
     Indication: DEPRESSION
     Dosage: 5 MG, UNK
     Route: 048
  3. ALPRAZOLAM [Concomitant]
     Indication: ANXIETY
     Dosage: UNK UNK, QD
     Route: 048
  4. PENTOXIFILINA [Concomitant]
     Indication: BLOOD DISORDER
     Dosage: 1 UNK, UNK
  5. OMEPRAZOLE [Concomitant]
     Indication: GASTRIC DISORDER
     Dosage: UNK UNK, QD
     Route: 048
  6. IBUPROFEN [Concomitant]
     Indication: PAIN
     Dosage: UNK UNK, QD
     Route: 048
  7. CELEBREX [Concomitant]
     Indication: DEPRESSION
     Dosage: UNK UNK, QD
     Route: 048
  8. FENTANILO [Concomitant]
     Indication: PAIN
     Dosage: 1 UNK, UNK
     Route: 062
  9. VENLAFAXIN STADA [Concomitant]
     Indication: BLOOD DISORDER
     Dosage: UNK UNK, BID
     Route: 048
  10. BUDESONIDA [Concomitant]
     Indication: ASTHMA
     Dosage: 200 MG, UNK
     Route: 048
  11. MIRTAZAPINE [Concomitant]
     Indication: SLEEP DISORDER
     Dosage: 1 UNK, UNK
     Route: 048

REACTIONS (3)
  - FATIGUE [None]
  - SURGERY [None]
  - INJECTION SITE HAEMATOMA [None]
